FAERS Safety Report 4485871-5 (Version None)
Quarter: 2004Q3

REPORT INFORMATION
  Report Type: 
  Country: None (occurrence: None)
  Receive Date: 20040921
  Receipt Date: 20030926
  Transmission Date: 20050211
  Serious: Yes (Life-Threatening, Hospitalization)
  Sender: FDA-Public Use
  Company Number: 163-20785-03090751

PATIENT
  Age: 70 Year
  Sex: Male
  Weight: 93.2 kg

DRUGS (11)
  1. THALOMID [Suspect]
     Indication: GLIOBLASTOMA MULTIFORME
     Dosage: 200 MG, QHS, ORAL
     Route: 048
     Dates: start: 20030917, end: 20030925
  2. ETOPOSIDE [Suspect]
     Indication: GLIOBLASTOMA MULTIFORME
     Dosage: 75 MG, QD, ORAL
     Route: 048
     Dates: start: 20030917, end: 20030925
  3. CELEBREX [Suspect]
     Indication: GLIOBLASTOMA MULTIFORME
     Dosage: 100 MG, BID, ORAL
     Route: 048
     Dates: start: 20030917, end: 20030925
  4. DECADRON [Concomitant]
  5. KEPRRA (LEVETIRACETAM) [Concomitant]
  6. FRAGMIN [Concomitant]
  7. EFFEXOR [Concomitant]
  8. ATIVAN [Concomitant]
  9. SEPTRA [Concomitant]
  10. TRILEPTAL [Concomitant]
  11. DEPAKOTE [Concomitant]

REACTIONS (4)
  - CONSTIPATION [None]
  - FATIGUE [None]
  - HYPONATRAEMIA [None]
  - HYPOTENSION [None]
